FAERS Safety Report 8960862 (Version 1)
Quarter: 2012Q4

REPORT INFORMATION
  Report Type: 
  Country: PL (occurrence: PL)
  Receive Date: 20121213
  Receipt Date: 20121213
  Transmission Date: 20130627
  Serious: Yes (Other)
  Sender: FDA-Public Use
  Company Number: PL-AMGEN-POLSP2012079640

PATIENT
  Age: 19 Year
  Sex: Female
  Weight: 60 kg

DRUGS (5)
  1. ENBREL [Suspect]
     Indication: PRODUCT USED FOR UNKNOWN INDICATION
     Dosage: 50 mg, weekly
     Route: 048
     Dates: start: 20100629
  2. METHOTREXAT                        /00113801/ [Concomitant]
     Dosage: 25 mg, weekly
     Route: 048
  3. DIPROSALIC [Concomitant]
     Dosage: UNK
  4. SALICYLIC ACID [Concomitant]
     Dosage: UNK
  5. UREA [Concomitant]
     Dosage: UNK

REACTIONS (1)
  - Psoriasis [Recovering/Resolving]
